FAERS Safety Report 7251409-2 (Version None)
Quarter: 2011Q1

REPORT INFORMATION
  Report Type: 
  Country: None (occurrence: None)
  Receive Date: 20110128
  Receipt Date: 20110114
  Transmission Date: 20110831
  Serious: Yes (Hospitalization, Other)
  Sender: FDA-Public Use
  Company Number: US-ELI_LILLY_AND_COMPANY-US201002002471

PATIENT
  Sex: Female

DRUGS (17)
  1. ALBUTEROL [Concomitant]
  2. ATENOLOL [Concomitant]
  3. FORTEO [Suspect]
     Dosage: 20 UG, DAILY (1/D)
     Dates: start: 20100201
  4. CORTICOSTEROIDS [Concomitant]
     Indication: DYSPNOEA
  5. XANAX [Concomitant]
  6. ASPIRIN [Concomitant]
  7. BUDESONIDE [Concomitant]
  8. NEXIUM [Concomitant]
  9. PREDNISONE [Concomitant]
  10. LEXAPRO [Concomitant]
  11. ATROVENT [Concomitant]
  12. SPIRIVA [Concomitant]
  13. FORTEO [Suspect]
     Indication: OSTEOPOROSIS
     Dosage: 20 UG, DAILY (1/D)
     Dates: start: 20090101
  14. CALCIUM [Concomitant]
  15. TYLENOL (CAPLET) [Concomitant]
     Dosage: UNK, AS NEEDED
  16. ZOCOR [Concomitant]
  17. RAMIPRIL [Concomitant]

REACTIONS (5)
  - CARDIAC DISORDER [None]
  - MYOCARDIAL INFARCTION [None]
  - FLUID RETENTION [None]
  - CAROTID ARTERY OCCLUSION [None]
  - HEART RATE INCREASED [None]
